FAERS Safety Report 14100641 (Version 2)
Quarter: 2017Q4

REPORT INFORMATION
  Report Type: Spontaneous
  Country: JP (occurrence: JP)
  Receive Date: 20171017
  Receipt Date: 20171030
  Transmission Date: 20180321
  Serious: Yes (Hospitalization)
  Sender: FDA-Public Use
  Company Number: JP-ROCHE-2010037

PATIENT
  Age: 77 Year
  Sex: Female

DRUGS (2)
  1. ACTEMRA [Suspect]
     Active Substance: TOCILIZUMAB
     Indication: RHEUMATOID ARTHRITIS
     Route: 041
     Dates: end: 2017
  2. ACTEMRA [Suspect]
     Active Substance: TOCILIZUMAB
     Route: 041

REACTIONS (2)
  - Fractured ischium [Unknown]
  - Pubis fracture [Unknown]

NARRATIVE: CASE EVENT DATE: 20170920
